FAERS Safety Report 7831327-9 (Version None)
Quarter: 2011Q4

REPORT INFORMATION
  Report Type: 
  Country: None (occurrence: None)
  Receive Date: 20111021
  Receipt Date: 20111006
  Transmission Date: 20120403
  Serious: Yes (Hospitalization)
  Sender: FDA-Public Use
  Company Number: FR-MERCK-1101FRA00140

PATIENT
  Age: 39 Year
  Sex: Male

DRUGS (1)
  1. PROPECIA [Suspect]
     Indication: ALOPECIA
     Route: 065
     Dates: start: 20010112, end: 20110501

REACTIONS (2)
  - MYALGIA [None]
  - MUSCLE DISORDER [None]
